FAERS Safety Report 5723906-X (Version None)
Quarter: 2008Q2

REPORT INFORMATION
  Report Type: 
  Country: None (occurrence: None)
  Receive Date: 20080428
  Receipt Date: 20071227
  Transmission Date: 20081010
  Serious: Yes (Other)
  Sender: FDA-Public Use
  Company Number: 2007338442

PATIENT
  Age: 74 Year
  Sex: Female
  Weight: 58.0604 kg

DRUGS (1)
  1. VISINE (OXYMETAZOLINE) [Suspect]
     Indication: DRY EYE
     Dosage: 1 DROP EACH EYE, ONCE DAILY,OPHTHALMIC
     Route: 047
     Dates: start: 20070201, end: 20070801

REACTIONS (2)
  - EYE BURNS [None]
  - PHARMACEUTICAL PRODUCT COMPLAINT [None]
